FAERS Safety Report 10714661 (Version 10)
Quarter: 2015Q2

REPORT INFORMATION
  Report Type: Spontaneous
  Country: US (occurrence: US)
  Receive Date: 20150115
  Receipt Date: 20150511
  Transmission Date: 20150821
  Serious: Yes (Hospitalization, Other)
  Sender: FDA-Public Use
  Company Number: US-UNITED THERAPEUTICS-UNT-2015-000077

PATIENT
  Age: 58 Year
  Sex: Female
  Weight: 87.53 kg

DRUGS (7)
  1. REMODULIN [Suspect]
     Active Substance: TREPROSTINIL
     Dosage: 0.009 ?G/KG, CONTINUING
     Route: 058
  2. TYVASO [Suspect]
     Active Substance: TREPROSTINIL
     Indication: PULMONARY ARTERIAL HYPERTENSION
     Dosage: 18-54 ?G, QID
     Dates: start: 201411, end: 20141215
  3. REVATIO [Concomitant]
     Active Substance: SILDENAFIL CITRATE
     Indication: PRODUCT USED FOR UNKNOWN INDICATION
  4. REMODULIN [Suspect]
     Active Substance: TREPROSTINIL
     Indication: PULMONARY ARTERIAL HYPERTENSION
     Dosage: 0.006 ?G/KG, CONTINUING
     Route: 058
     Dates: start: 20141224
  5. REMODULIN [Suspect]
     Active Substance: TREPROSTINIL
     Dosage: 0.010 ?G/KG, CONTINUING
     Route: 058
  6. ASPIRIN                            /00002701/ [Concomitant]
     Active Substance: ASPIRIN
     Indication: PRODUCT USED FOR UNKNOWN INDICATION
  7. REMODULIN [Suspect]
     Active Substance: TREPROSTINIL
     Dosage: 0.0095 ?G/KG, CONTINUING
     Route: 058

REACTIONS (36)
  - Asthenia [Unknown]
  - Diarrhoea [Unknown]
  - Sneezing [Unknown]
  - Pulmonary arterial hypertension [Not Recovered/Not Resolved]
  - Depression [Recovered/Resolved]
  - Amnesia [Not Recovered/Not Resolved]
  - Pain in extremity [Unknown]
  - Pain [Unknown]
  - Abdominal discomfort [Unknown]
  - Decreased appetite [Unknown]
  - Dizziness [Unknown]
  - Pain in jaw [Unknown]
  - Drug dose omission [Unknown]
  - Dehydration [Unknown]
  - Blood pressure decreased [Recovered/Resolved]
  - Infusion site erythema [Unknown]
  - Pyrexia [Unknown]
  - Device dislocation [Unknown]
  - Tremor [Unknown]
  - Loss of consciousness [Recovered/Resolved]
  - Cough [Unknown]
  - Eating disorder symptom [Unknown]
  - Confusional state [Not Recovered/Not Resolved]
  - Fatigue [Unknown]
  - Headache [Unknown]
  - Rubber sensitivity [Unknown]
  - Nausea [Unknown]
  - Contusion [Unknown]
  - Neck pain [Unknown]
  - Nasopharyngitis [Unknown]
  - Anxiety [Not Recovered/Not Resolved]
  - Infusion site pain [Unknown]
  - Musculoskeletal pain [Unknown]
  - Abdominal distension [Unknown]
  - Epistaxis [Unknown]
  - Drug ineffective [Unknown]

NARRATIVE: CASE EVENT DATE: 2014
